FAERS Safety Report 6381837-9 (Version None)
Quarter: 2009Q3

REPORT INFORMATION
  Report Type: 
  Country: None (occurrence: None)
  Receive Date: 20090930
  Receipt Date: 20090925
  Transmission Date: 20100115
  Serious: No
  Sender: FDA-Public Use
  Company Number: US-JNJFOC-20090908024

PATIENT
  Sex: Female
  Weight: 69.85 kg

DRUGS (3)
  1. DURAGESIC-100 [Suspect]
     Indication: POLYMYOSITIS
     Route: 062
  2. DURAGESIC-100 [Suspect]
     Route: 062
     Dates: start: 20020101
  3. OXYCONTIN [Concomitant]
     Indication: PAIN
     Route: 048

REACTIONS (6)
  - COLD SWEAT [None]
  - DIZZINESS [None]
  - DRUG DOSE OMISSION [None]
  - INAPPROPRIATE SCHEDULE OF DRUG ADMINISTRATION [None]
  - NAUSEA [None]
  - PRODUCT QUALITY ISSUE [None]
